FAERS Safety Report 15067614 (Version 1)
Quarter: 2018Q2

REPORT INFORMATION
  Report Type: Spontaneous
  Country: US (occurrence: US)
  Receive Date: 20180626
  Receipt Date: 20180626
  Transmission Date: 20180711
  Serious: No
  Sender: FDA-Public Use
  Company Number: US-ALEXION PHARMACEUTICALS INC.-A201807822

PATIENT
  Sex: Female
  Weight: 131.97 kg

DRUGS (1)
  1. SOLIRIS [Suspect]
     Active Substance: ECULIZUMAB
     Indication: MYASTHENIA GRAVIS
     Dosage: 1200 MG,Q2W
     Route: 065

REACTIONS (2)
  - Fatigue [Unknown]
  - Muscular weakness [Not Recovered/Not Resolved]
